FAERS Safety Report 6809658-0 (Version None)
Quarter: 2010Q2

REPORT INFORMATION
  Report Type: 
  Country: None (occurrence: None)
  Receive Date: 20100630
  Receipt Date: 20100624
  Transmission Date: 20101027
  Serious: Yes (Hospitalization)
  Sender: FDA-Public Use
  Company Number: FR-PFIZER INC-2008075383

PATIENT
  Age: 62 Year
  Sex: Female
  Weight: 58 kg

DRUGS (2)
  1. SUNITINIB MALATE [Suspect]
     Indication: BREAST CANCER METASTATIC
     Dosage: 37.5 MG, 1X/DAY
     Route: 048
     Dates: start: 20080726, end: 20080823
  2. CAPECITABINE [Suspect]
     Indication: BREAST CANCER METASTATIC
     Dosage: 1500 MG, TWICE DAILY FROM DAY1 TO DAY14, EVERY THREE WEEKS
     Route: 048
     Dates: start: 20080130, end: 20080714

REACTIONS (4)
  - HEADACHE [None]
  - MUSCULAR WEAKNESS [None]
  - PLEURAL EFFUSION [None]
  - VOMITING [None]
